FAERS Safety Report 23503688 (Version 3)
Quarter: 2024Q1

REPORT INFORMATION
  Report Type: Report from Study
  Country: US (occurrence: US)
  Receive Date: 20240209
  Receipt Date: 20240319
  Transmission Date: 20240410
  Serious: Yes (Hospitalization, Other)
  Sender: FDA-Public Use
  Company Number: US-ABBVIE-5616856

PATIENT
  Age: 76 Year
  Sex: Female

DRUGS (5)
  1. HUMIRA [Suspect]
     Active Substance: ADALIMUMAB
     Indication: Psoriasis
     Dosage: FORM STRENGTH: 40MG ?CITRATE FREE
     Route: 058
     Dates: start: 20240123
  2. HUMIRA [Suspect]
     Active Substance: ADALIMUMAB
     Dosage: FORM STRENGTH: 40MG ?CITRATE FREE
     Route: 058
     Dates: start: 20231027
  3. HUMIRA [Suspect]
     Active Substance: ADALIMUMAB
     Dosage: FORM STRENGTH: 40MG ?CITRATE FREE
     Route: 058
     Dates: start: 20240215
  4. HUMIRA [Suspect]
     Active Substance: ADALIMUMAB
     Dosage: FORM STRENGTH: 40MG ?CITRATE FREE
     Route: 058
     Dates: start: 20240229
  5. HUMIRA [Suspect]
     Active Substance: ADALIMUMAB
     Dosage: FORM STRENGTH: 40MG ?CITRATE FREE
     Route: 058
     Dates: start: 20240116

REACTIONS (4)
  - Lithiasis [Recovering/Resolving]
  - Biliary obstruction [Recovering/Resolving]
  - Hepatic infection [Unknown]
  - Sepsis [Unknown]

NARRATIVE: CASE EVENT DATE: 20240101
